FAERS Safety Report 5288621-8 (Version None)
Quarter: 2007Q1

REPORT INFORMATION
  Report Type: 
  Country: None (occurrence: None)
  Receive Date: 20070330
  Receipt Date: 20070319
  Transmission Date: 20070707
  Serious: Yes (Other)
  Sender: FDA-Public Use
  Company Number: 15999

PATIENT
  Age: 25 Year
  Sex: Male

DRUGS (9)
  1. BLEOMYCIN [Suspect]
     Indication: HODGKIN'S DISEASE
     Dates: start: 20010801
  2. BLEOMYCIN [Suspect]
     Indication: HODGKIN'S DISEASE
     Dates: start: 20030601
  3. DACARBAZINE [Suspect]
     Indication: HODGKIN'S DISEASE
     Dates: start: 20010801
  4. DACARBAZINE [Suspect]
     Indication: HODGKIN'S DISEASE
     Dates: start: 20030601
  5. DOXORUBICIN HCL [Suspect]
     Indication: HODGKIN'S DISEASE
     Dates: start: 20010801
  6. DOXORUBICIN HCL [Suspect]
     Indication: HODGKIN'S DISEASE
     Dates: start: 20030601
  7. VINBLASTINE SULFATE [Suspect]
     Indication: HODGKIN'S DISEASE
     Dates: start: 20010801
  8. VINBLASTINE SULFATE [Suspect]
     Indication: HODGKIN'S DISEASE
     Dates: start: 20030601
  9. CORTICOSTEROID [Concomitant]

REACTIONS (8)
  - DISEASE PROGRESSION [None]
  - HODGKIN'S DISEASE [None]
  - IMMUNOSUPPRESSION [None]
  - INTERSTITIAL LUNG DISEASE [None]
  - LUNG NEOPLASM [None]
  - LYMPHADENOPATHY [None]
  - SARCOIDOSIS [None]
  - TREATMENT NONCOMPLIANCE [None]
